FAERS Safety Report 4878725-3 (Version None)
Quarter: 2006Q1

REPORT INFORMATION
  Report Type: 
  Country: None (occurrence: None)
  Receive Date: 20060110
  Receipt Date: 20060103
  Transmission Date: 20060701
  Serious: Yes (Disabling, Other)
  Sender: FDA-Public Use
  Company Number: 2006001736

PATIENT
  Age: 54 Year
  Sex: Male
  Weight: 88.4514 kg

DRUGS (10)
  1. LIPITOR [Suspect]
     Indication: BLOOD CHOLESTEROL INCREASED
     Dosage: 10 MG (10 MG, 1 IN 1 D), UNKNOWN
     Route: 065
     Dates: start: 20030101
  2. CELEBREX [Suspect]
     Indication: ARTHRITIS
     Dosage: UNKNOWN
     Route: 065
     Dates: start: 20050101
  3. NEXIUM [Concomitant]
  4. BENICAR HCT [Concomitant]
  5. CYMBALTA [Concomitant]
  6. PLAVIX [Concomitant]
  7. ASPIRIN [Concomitant]
  8. CLONAZEPAM [Concomitant]
  9. OXYCONTIN [Concomitant]
  10. VIOXX [Concomitant]

REACTIONS (6)
  - CONDITION AGGRAVATED [None]
  - DIFFICULTY IN WALKING [None]
  - DRUG INEFFECTIVE [None]
  - OSTEOARTHRITIS [None]
  - PERIPHERAL ARTERIAL OCCLUSIVE DISEASE [None]
  - STENT OCCLUSION [None]
